FAERS Safety Report 23842111 (Version 1)
Quarter: 2024Q2

REPORT INFORMATION
  Report Type: Spontaneous
  Country: FI (occurrence: FI)
  Receive Date: 20240510
  Receipt Date: 20240510
  Transmission Date: 20240716
  Serious: Yes (Other)
  Sender: FDA-Public Use
  Company Number: None

PATIENT
  Age: 7 Year
  Sex: Female

DRUGS (2)
  1. NGENLA [Suspect]
     Active Substance: SOMATROGON-GHLA
     Indication: Growth hormone deficiency
     Dosage: 12,5 MG ONCE PER WEEK
     Route: 058
     Dates: start: 20240103, end: 20240429
  2. AERIUS (DESLORATADINE) [Concomitant]
     Active Substance: DESLORATADINE
     Indication: Hypersensitivity
     Dosage: UNK UNK, 1X/DAY
     Route: 048
     Dates: start: 202404

REACTIONS (6)
  - Growth retardation [Unknown]
  - Injection site pain [Unknown]
  - Pain in extremity [Unknown]
  - Weight increased [Unknown]
  - Precocious puberty [Unknown]
  - Increased appetite [Unknown]

NARRATIVE: CASE EVENT DATE: 20240101
